FAERS Safety Report 10080481 (Version 4)
Quarter: 2014Q2

REPORT INFORMATION
  Report Type: Report from Study
  Country: CA (occurrence: CA)
  Receive Date: 20140416
  Receipt Date: 20140430
  Transmission Date: 20141212
  Serious: Yes (Other)
  Sender: FDA-Public Use
  Company Number: CA-ROCHE-1328142

PATIENT
  Age: 58 Year
  Sex: Female

DRUGS (5)
  1. AVASTIN [Suspect]
     Indication: GLIOBLASTOMA
     Route: 042
     Dates: start: 20131205, end: 20140408
  2. RABEPRAZOLE [Concomitant]
  3. KEPPRA [Concomitant]
  4. DILANTIN [Concomitant]
  5. DEXAMETHASONE [Concomitant]
     Dosage: DECREASED FROM 36/24 HRS TO 24/24 HOURS
     Route: 065

REACTIONS (11)
  - Hypertension [Unknown]
  - Deep vein thrombosis [Recovering/Resolving]
  - Muscular weakness [Not Recovered/Not Resolved]
  - Confusional state [Not Recovered/Not Resolved]
  - Nasopharyngitis [Unknown]
  - Localised infection [Recovered/Resolved]
  - Sinus headache [Unknown]
  - Cough [Recovered/Resolved]
  - Neoplasm [Unknown]
  - Tumour haemorrhage [Unknown]
  - Disease progression [Unknown]
